FAERS Safety Report 9034807 (Version 1)
Quarter: 2013Q1

REPORT INFORMATION
  Report Type: Spontaneous
  Country: US (occurrence: None)
  Receive Date: 20130116
  Receipt Date: 20130116
  Transmission Date: 20140127
  Serious: Yes (Life-Threatening)
  Sender: FDA-Public Use
  Company Number: None

PATIENT
  Age: 81 Year
  Sex: Male
  Weight: 81.8 kg

DRUGS (2)
  1. LISINOPRIL [Suspect]
     Indication: HYPERTENSION
     Route: 048
     Dates: start: 20111021, end: 20121029
  2. PHYTONADIONE [Suspect]
     Indication: INTERNATIONAL NORMALISED RATIO DECREASED
     Dates: start: 20121031, end: 20121031

REACTIONS (15)
  - Malaise [None]
  - Haematemesis [None]
  - Presyncope [None]
  - Gastroenteritis viral [None]
  - Fall [None]
  - Hyperhidrosis [None]
  - Pallor [None]
  - Diarrhoea [None]
  - Faeces discoloured [None]
  - Dyspepsia [None]
  - Haematocrit decreased [None]
  - International normalised ratio increased [None]
  - Skin test positive [None]
  - Swollen tongue [None]
  - Anaphylactic reaction [None]
